FAERS Safety Report 10686646 (Version 1)
Quarter: 2015Q1

REPORT INFORMATION
  Report Type: Other
  Country: GB (occurrence: GB)
  Receive Date: 20150101
  Receipt Date: 20150101
  Transmission Date: 20150720
  Serious: Yes (Life-Threatening)
  Sender: FDA-Public Use
  Company Number: GB-SUN PHARMACEUTICAL INDUSTRIES LTD-2014SUN02957

PATIENT

DRUGS (4)
  1. LETROZOLE. [Suspect]
     Active Substance: LETROZOLE
     Indication: BREAST CANCER
     Route: 048
  2. BENDROFLUMETHIAZIDE [Concomitant]
     Active Substance: BENDROFLUMETHIAZIDE
  3. FULTIUM-D3 [Concomitant]
  4. VITAMIN B COMPLEX STRONG [Concomitant]

REACTIONS (2)
  - Cerebral haemorrhage [Not Recovered/Not Resolved]
  - Tachycardia [Not Recovered/Not Resolved]
